FAERS Safety Report 11057721 (Version 21)
Quarter: 2021Q1

REPORT INFORMATION
  Report Type: Other
  Country: CA (occurrence: CA)
  Receive Date: 20150423
  Receipt Date: 20210326
  Transmission Date: 20210419
  Serious: Yes (Other)
  Sender: FDA-Public Use
  Company Number: CA-ROCHE-1233662

PATIENT
  Age: 55 Year
  Sex: Female
  Weight: 78 kg

DRUGS (31)
  1. FOLIC ACID. [Concomitant]
     Active Substance: FOLIC ACID
     Dosage: 400MCG
  2. LASIX [Concomitant]
     Active Substance: FUROSEMIDE
  3. RITUXAN [Suspect]
     Active Substance: RITUXIMAB
     Route: 042
     Dates: start: 20141218
  4. SULFASALAZINE. [Suspect]
     Active Substance: SULFASALAZINE
     Indication: PRODUCT USED FOR UNKNOWN INDICATION
     Route: 065
  5. RITUXAN [Suspect]
     Active Substance: RITUXIMAB
     Route: 042
     Dates: start: 20160603
  6. SULFASALAZINE. [Suspect]
     Active Substance: SULFASALAZINE
     Dosage: 1?1.5 G
     Route: 065
  7. ACTEMRA [Suspect]
     Active Substance: TOCILIZUMAB
     Route: 042
     Dates: start: 20141218, end: 2015
  8. KINERET [Suspect]
     Active Substance: ANAKINRA
     Indication: PRODUCT USED FOR UNKNOWN INDICATION
     Route: 065
  9. INFLIXIMAB [Suspect]
     Active Substance: INFLIXIMAB
     Indication: PRODUCT USED FOR UNKNOWN INDICATION
     Route: 065
  10. FERROUS GLUCONATE [Concomitant]
     Active Substance: FERROUS GLUCONATE
  11. OXYNEO [Concomitant]
     Active Substance: OXYCODONE
  12. NAPROXEN. [Suspect]
     Active Substance: NAPROXEN
     Indication: PRODUCT USED FOR UNKNOWN INDICATION
     Route: 065
  13. NAPROXEN. [Suspect]
     Active Substance: NAPROXEN
     Route: 065
     Dates: start: 2019
  14. METHOTREXATE. [Suspect]
     Active Substance: METHOTREXATE
     Indication: PRODUCT USED FOR UNKNOWN INDICATION
     Route: 065
  15. CHOLECALCIFEROLUM [Concomitant]
     Active Substance: CHOLECALCIFEROL
     Dosage: 1000 UNITS
  16. TYLENOL [Concomitant]
     Active Substance: ACETAMINOPHEN
     Indication: PREMEDICATION
     Route: 048
  17. RITUXAN [Suspect]
     Active Substance: RITUXIMAB
     Dosage: MOST RECENT DOSE OF RITUXIMAB: 12/JUN/2017
     Route: 042
     Dates: start: 20160616
  18. ACETAMINOPHEN. [Concomitant]
     Active Substance: ACETAMINOPHEN
     Indication: PREMEDICATION
     Route: 048
     Dates: start: 20090818, end: 20140805
  19. OXYCONTIN [Concomitant]
     Active Substance: OXYCODONE HYDROCHLORIDE
  20. RITUXAN [Suspect]
     Active Substance: RITUXIMAB
     Indication: RHEUMATOID ARTHRITIS
     Route: 042
     Dates: start: 20070625
  21. ACTEMRA [Suspect]
     Active Substance: TOCILIZUMAB
     Indication: RHEUMATOID ARTHRITIS
     Dosage: NO PIRS
     Route: 042
     Dates: start: 20141120, end: 20150619
  22. PLAQUENIL [Suspect]
     Active Substance: HYDROXYCHLOROQUINE SULFATE
     Indication: PRODUCT USED FOR UNKNOWN INDICATION
     Route: 065
  23. DIPHENHYDRAMINE HCL [Concomitant]
     Active Substance: DIPHENHYDRAMINE HYDROCHLORIDE
     Indication: PREMEDICATION
     Route: 048
     Dates: start: 20090818, end: 20140805
  24. METHYLPREDNISOLONE. [Concomitant]
     Active Substance: METHYLPREDNISOLONE
     Indication: PREMEDICATION
     Route: 042
     Dates: start: 20090818, end: 20140805
  25. OXYNEO [Concomitant]
     Active Substance: OXYCODONE
  26. NAPROSYN [Concomitant]
     Active Substance: NAPROXEN
  27. RITUXAN [Suspect]
     Active Substance: RITUXIMAB
     Route: 042
     Dates: start: 20141120
  28. RITUXAN [Suspect]
     Active Substance: RITUXIMAB
     Dosage: FIRST PIR RECEIVED
     Route: 042
     Dates: start: 20090818
  29. RITUXAN [Suspect]
     Active Substance: RITUXIMAB
     Route: 042
     Dates: start: 2016
  30. LEFLUNOMIDE. [Suspect]
     Active Substance: LEFLUNOMIDE
     Indication: PRODUCT USED FOR UNKNOWN INDICATION
     Route: 065
  31. ETANERCEPT [Suspect]
     Active Substance: ETANERCEPT
     Indication: PRODUCT USED FOR UNKNOWN INDICATION
     Route: 065

REACTIONS (34)
  - Suicidal ideation [Not Recovered/Not Resolved]
  - Basal cell carcinoma [Unknown]
  - Medication error [Unknown]
  - Drug ineffective [Unknown]
  - Abdominal pain upper [Unknown]
  - Nasopharyngitis [Not Recovered/Not Resolved]
  - Skin fissures [Recovered/Resolved]
  - Ill-defined disorder [Unknown]
  - Blood pressure increased [Unknown]
  - Rheumatoid arthritis [Not Recovered/Not Resolved]
  - Weight increased [Unknown]
  - Joint swelling [Unknown]
  - Blood pressure fluctuation [Unknown]
  - Flushing [Unknown]
  - Toothache [Unknown]
  - Heart rate decreased [Unknown]
  - Drug intolerance [Unknown]
  - Peripheral swelling [Recovering/Resolving]
  - Localised infection [Not Recovered/Not Resolved]
  - Therapeutic response decreased [Unknown]
  - Impaired healing [Recovered/Resolved]
  - Joint swelling [Recovering/Resolving]
  - Therapeutic product effect decreased [Unknown]
  - Infusion related reaction [Unknown]
  - Tooth disorder [Unknown]
  - Endodontic procedure [Unknown]
  - Rash [Recovered/Resolved]
  - Malaise [Unknown]
  - Herpes zoster [Unknown]
  - Depression [Not Recovered/Not Resolved]
  - Smear cervix abnormal [Unknown]
  - Pain [Not Recovered/Not Resolved]
  - Rheumatoid arthritis [Unknown]
  - Therapy non-responder [Unknown]

NARRATIVE: CASE EVENT DATE: 2014
